FAERS Safety Report 17488500 (Version 9)
Quarter: 2020Q3

REPORT INFORMATION
  Report Type: Report from Study
  Country: ES (occurrence: ES)
  Receive Date: 20200303
  Receipt Date: 20200722
  Transmission Date: 20201102
  Serious: Yes (Hospitalization)
  Sender: FDA-Public Use
  Company Number: ES-EISAI MEDICAL RESEARCH-EC-2020-071053

PATIENT
  Age: 75 Year
  Sex: Male
  Weight: 57.7 kg

DRUGS (16)
  1. TRINOMIA [Concomitant]
     Dates: start: 201009
  2. CLOPIDOGREL [Concomitant]
     Active Substance: CLOPIDOGREL BISULFATE
     Dates: start: 200810, end: 20200405
  3. HYDROCHLOROTHIAZIDE. [Concomitant]
     Active Substance: HYDROCHLOROTHIAZIDE
     Dates: start: 20200131
  4. LENVATINIB [Suspect]
     Active Substance: LENVATINIB
     Indication: HEPATOCELLULAR CARCINOMA
     Dosage: (BODY WEIGHT (BW) LESS THAN 60 KG)
     Route: 048
     Dates: start: 20200124, end: 20200223
  5. LENVATINIB [Suspect]
     Active Substance: LENVATINIB
     Route: 048
     Dates: start: 20200305
  6. PANTOPRAZOLE [Concomitant]
     Active Substance: PANTOPRAZOLE
     Dates: start: 201012, end: 20200303
  7. PEMBROLIZUMAB. [Suspect]
     Active Substance: PEMBROLIZUMAB
     Route: 041
     Dates: start: 20200211, end: 20200211
  8. DIPYRONE [Concomitant]
     Active Substance: DIPYRONE
     Dates: start: 201601
  9. PEMBROLIZUMAB. [Suspect]
     Active Substance: PEMBROLIZUMAB
     Indication: HEPATOCELLULAR CARCINOMA
     Route: 041
     Dates: start: 20200124, end: 20200124
  10. CITALOPRAM [Concomitant]
     Active Substance: CITALOPRAM HYDROBROMIDE
     Dates: start: 200810
  11. PEMBROLIZUMAB. [Suspect]
     Active Substance: PEMBROLIZUMAB
     Route: 041
     Dates: start: 20200305
  12. ACETAMINOPHEN. [Concomitant]
     Active Substance: ACETAMINOPHEN
     Dates: start: 201601
  13. PSYLLIUM [Concomitant]
     Active Substance: PLANTAGO SEED
     Dates: start: 20200204
  14. ENTECAVIR. [Concomitant]
     Active Substance: ENTECAVIR
     Dates: start: 201610, end: 20200224
  15. LOPERAMIDE [Concomitant]
     Active Substance: LOPERAMIDE
     Dates: start: 20200204
  16. BARNIX [Concomitant]
     Active Substance: BARNIDIPINE HYDROCHLORIDE
     Dates: start: 201803

REACTIONS (1)
  - Diarrhoea [Recovered/Resolved]

NARRATIVE: CASE EVENT DATE: 20200223
